FAERS Safety Report 11069033 (Version 2)
Quarter: 2015Q2

REPORT INFORMATION
  Report Type: Spontaneous
  Country: US (occurrence: US)
  Receive Date: 20150427
  Receipt Date: 20150506
  Transmission Date: 20150821
  Serious: No
  Sender: FDA-Public Use
  Company Number: US-PFIZER INC-2015137993

PATIENT
  Age: 67 Year
  Sex: Male

DRUGS (2)
  1. NITROSTAT [Suspect]
     Active Substance: NITROGLYCERIN
     Indication: BLOOD PRESSURE ABNORMAL
  2. NITROSTAT [Suspect]
     Active Substance: NITROGLYCERIN
     Indication: CARDIAC DISORDER
     Dosage: 0.4 MG, UNK
     Dates: start: 201504, end: 201504

REACTIONS (2)
  - Product physical issue [Unknown]
  - Drug ineffective [Unknown]
